FAERS Safety Report 10163245 (Version 1)
Quarter: 2014Q2

REPORT INFORMATION
  Report Type: Report from Study
  Country: RU (occurrence: RU)
  Receive Date: 20140509
  Receipt Date: 20140509
  Transmission Date: 20141212
  Serious: Yes (Death, Hospitalization)
  Sender: FDA-Public Use
  Company Number: RU-BRISTOL-MYERS SQUIBB COMPANY-20678975

PATIENT
  Age: 67 Year
  Sex: Male
  Weight: 62 kg

DRUGS (14)
  1. CARBOPLATIN [Suspect]
     Indication: NON-SMALL CELL LUNG CANCER METASTATIC
     Dosage: 1DF:6 AUC ON DAY 3 OF EACH 21-DAY CYCLE
     Route: 042
     Dates: start: 20121129, end: 20121129
  2. PACLITAXEL [Suspect]
     Indication: NON-SMALL CELL LUNG CANCER
     Dosage: DAY 3 OF EACH 21-DAY CYCLE
     Route: 042
     Dates: start: 20121129, end: 20121129
  3. DEXAMETHASONE [Concomitant]
     Indication: PREMEDICATION
     Dates: start: 20121129, end: 20121129
  4. ONDANSETRON [Concomitant]
     Indication: PREMEDICATION
     Dates: start: 20121129, end: 20121129
  5. SOLU-MEDROL [Concomitant]
     Indication: PREMEDICATION
     Dates: start: 20121129, end: 20121129
  6. RANITIDINE [Concomitant]
     Indication: PREMEDICATION
     Dates: start: 20121129, end: 20121129
  7. BISOPROLOL [Concomitant]
     Indication: ANGINA PECTORIS
     Dates: start: 20090901
  8. ACETYLSALICYLIC ACID [Concomitant]
     Indication: MYOCARDIAL FIBROSIS
     Dates: start: 20090901
  9. MAGNESIUM HYDROXIDE [Concomitant]
     Indication: MYOCARDIAL FIBROSIS
     Dates: start: 20090901
  10. PERINDOPRIL [Concomitant]
     Indication: CORONARY ARTERY DISEASE
     Dates: start: 20120901
  11. ATORVASTATIN [Concomitant]
     Indication: CORONARY ARTERY DISEASE
     Dates: start: 20090901
  12. ISOSORBIDE MONONITRATE [Concomitant]
     Indication: CORONARY ARTERY DISEASE
     Dates: start: 20090901
  13. ISOSORBIDE MONONITRATE [Concomitant]
     Indication: ANGINA PECTORIS
     Dates: start: 20090901
  14. TRIMETAZIDINE [Concomitant]
     Indication: CORONARY ARTERY DISEASE
     Dates: start: 20090901

REACTIONS (1)
  - Acute myocardial infarction [Fatal]
